FAERS Safety Report 16546234 (Version 1)
Quarter: 2019Q3

REPORT INFORMATION
  Report Type: Spontaneous
  Country: BR (occurrence: BR)
  Receive Date: 20190709
  Receipt Date: 20190709
  Transmission Date: 20191004
  Serious: Yes (Other)
  Sender: FDA-Public Use
  Company Number: BR-ASTRAZENECA-2019SE96317

PATIENT
  Sex: Male

DRUGS (1)
  1. IRESSA [Suspect]
     Active Substance: GEFITINIB
     Indication: EGFR GENE MUTATION
     Route: 048
     Dates: start: 201904

REACTIONS (4)
  - Pulmonary cavitation [Recovering/Resolving]
  - Nervous system disorder [Unknown]
  - Pyrexia [Unknown]
  - Central nervous system necrosis [Unknown]

NARRATIVE: CASE EVENT DATE: 2019
